FAERS Safety Report 13859042 (Version 1)
Quarter: 2017Q3

REPORT INFORMATION
  Report Type: Spontaneous
  Country: US (occurrence: US)
  Receive Date: 20170811
  Receipt Date: 20170811
  Transmission Date: 20171127
  Serious: No
  Sender: FDA-Public Use
  Company Number: US-PERRIGO-17US000099

PATIENT
  Age: 40 Year
  Sex: Male

DRUGS (3)
  1. LORATADINE. [Suspect]
     Active Substance: LORATADINE
     Indication: LOWER RESPIRATORY TRACT INFECTION
     Dosage: 10 MG, QD
     Route: 048
     Dates: start: 20161229
  2. LORATADINE. [Suspect]
     Active Substance: LORATADINE
     Indication: WHEEZING
  3. HYDROCODONE [Concomitant]
     Active Substance: HYDROCODONE
     Indication: BACK PAIN
     Dosage: UNK
     Route: 048

REACTIONS (1)
  - Off label use [Unknown]

NARRATIVE: CASE EVENT DATE: 20161229
